FAERS Safety Report 5691063-4 (Version None)
Quarter: 2008Q2

REPORT INFORMATION
  Report Type: 
  Country: None (occurrence: None)
  Receive Date: 20080401
  Receipt Date: 20080325
  Transmission Date: 20081010
  Serious: Yes (Disabling, Other)
  Sender: FDA-Public Use
  Company Number: US-PFIZER INC-2008018632

PATIENT
  Sex: Female
  Weight: 59 kg

DRUGS (5)
  1. XANAX [Suspect]
     Indication: STRESS
     Route: 048
  2. XANAX [Suspect]
     Indication: ANXIETY
  3. CHANTIX [Suspect]
     Indication: SMOKING CESSATION THERAPY
     Dosage: TEXT:EVERY DAY
     Route: 048
     Dates: start: 20071201, end: 20071201
  4. ALL OTHER THERAPEUTIC PRODUCTS [Suspect]
  5. VITAMINS [Concomitant]

REACTIONS (5)
  - ANXIETY [None]
  - JOB DISSATISFACTION [None]
  - OBESITY SURGERY [None]
  - SOMNOLENCE [None]
  - STRESS [None]
